FAERS Safety Report 7477736-1 (Version None)
Quarter: 2011Q2

REPORT INFORMATION
  Report Type: 
  Country: None (occurrence: None)
  Receive Date: 20110513
  Receipt Date: 20110429
  Transmission Date: 20111010
  Serious: Yes (Other)
  Sender: FDA-Public Use
  Company Number: ES-ELI_LILLY_AND_COMPANY-ES201105000347

PATIENT
  Sex: Female
  Weight: 73 kg

DRUGS (6)
  1. OMEPRAZOL [Concomitant]
     Indication: PROPHYLAXIS
     Dosage: UNK, QD
     Route: 048
  2. ASPIRIN [Concomitant]
     Dosage: UNK UNK, QD
     Route: 048
  3. GELOCATIL [Concomitant]
     Indication: PAIN
     Dosage: UNK, OTHER
     Route: 048
  4. FORTEO [Suspect]
     Indication: OSTEOPOROSIS
     Dosage: 20 UG, QD
     Route: 058
     Dates: start: 20110313, end: 20110426
  5. DIOVAN HCT [Concomitant]
     Indication: HYPERTENSION
     Dosage: UNK, QD
     Route: 048
  6. EUTIROX [Concomitant]
     Indication: HYPOTHYROIDISM
     Dosage: 75 MG, QD
     Route: 048

REACTIONS (1)
  - RENAL FAILURE [None]
